FAERS Safety Report 4946033-8 (Version None)
Quarter: 2006Q1

REPORT INFORMATION
  Report Type: 
  Country: None (occurrence: None)
  Receive Date: 20060118
  Receipt Date: 20050610
  Transmission Date: 20060701
  Serious: Yes (Death, Hospitalization)
  Sender: FDA-Public Use
  Company Number: REM_00125_2005

PATIENT
  Age: 37 Year
  Sex: Male
  Weight: 80.7403 kg

DRUGS (5)
  1. REMODULIN [Suspect]
     Indication: PULMONARY HYPERTENSION
     Dosage: NG/KG/MIN CONTINUOUS SC
     Route: 058
     Dates: start: 20040609, end: 20051111
  2. REMODULIN [Suspect]
     Indication: PULMONARY HYPERTENSION
     Dosage: 66 NG/KG/MIN CONTINUOUS IV
     Route: 042
     Dates: end: 20050628
  3. REMODULIN [Suspect]
     Indication: PULMONARY HYPERTENSION
     Dosage: 49 NG/KG/MIN CONTINUOUS IV
     Route: 042
     Dates: start: 20050629, end: 20050714
  4. IMODIUM [Concomitant]
  5. VIDODIN [Concomitant]

REACTIONS (4)
  - CIRRHOSIS ALCOHOLIC [None]
  - HEPATIC FAILURE [None]
  - PLATELET COUNT DECREASED [None]
  - SPLENOMEGALY [None]
